FAERS Safety Report 9302280 (Version 1)
Quarter: 2020Q3

REPORT INFORMATION
  Report Type: Report from Study
  Country: EC (occurrence: EC)
  Receive Date: 20130522
  Receipt Date: 20130522
  Transmission Date: 20201105
  Serious: Yes (Death)
  Sender: FDA-Public Use
  Company Number: EC-ROCHE-1227240

PATIENT
  Sex: Female

DRUGS (1)
  1. IBANDRONIC ACID. [Suspect]
     Active Substance: IBANDRONIC ACID
     Indication: OSTEOPOROSIS
     Dosage: PRE?FILLED SYRINGES, SOLUTION
     Route: 042

REACTIONS (1)
  - Thyroid cancer [Fatal]
